FAERS Safety Report 23377586 (Version 1)
Quarter: 2024Q1

REPORT INFORMATION
  Report Type: Spontaneous
  Country: US (occurrence: None)
  Receive Date: 20240104
  Receipt Date: 20240104
  Transmission Date: 20240410
  Serious: No
  Sender: FDA-Public Use
  Company Number: None

PATIENT

DRUGS (1)
  1. NOREPINEPHRINE [Suspect]
     Active Substance: NOREPINEPHRINE

REACTIONS (3)
  - Incorrect drug administration rate [None]
  - Fatigue [None]
  - Device dispensing error [None]

NARRATIVE: CASE EVENT DATE: 20231227
